FAERS Safety Report 6377264-0 (Version None)
Quarter: 2009Q3

REPORT INFORMATION
  Report Type: 
  Country: None (occurrence: None)
  Receive Date: 20090924
  Receipt Date: 20090924
  Transmission Date: 20100115
  Serious: Yes (Hospitalization)
  Sender: FDA-Public Use
  Company Number: None

PATIENT
  Age: 78 Year
  Sex: Male
  Weight: 64.4 kg

DRUGS (1)
  1. DILTIAZEM [Suspect]
     Indication: ATRIAL FIBRILLATION
     Dosage: 300 MG EVERY DAY PO
     Route: 048
     Dates: start: 20090428, end: 20090610

REACTIONS (1)
  - ATRIOVENTRICULAR BLOCK COMPLETE [None]
